FAERS Safety Report 7014436-6 (Version None)
Quarter: 2010Q3

REPORT INFORMATION
  Report Type: 
  Country: None (occurrence: None)
  Receive Date: 20100927
  Receipt Date: 20100805
  Transmission Date: 20110219
  Serious: No
  Sender: FDA-Public Use
  Company Number: US-MYLANLABS-2010S1014458

PATIENT
  Age: 66 Year
  Sex: Female
  Weight: 77.11 kg

DRUGS (1)
  1. ANASTROZOLE TABLETS [Suspect]
     Indication: BREAST CANCER
     Route: 048
     Dates: start: 20100801, end: 20100804

REACTIONS (4)
  - DIARRHOEA [None]
  - NAUSEA [None]
  - VOMITING [None]
  - WEIGHT DECREASED [None]
